FAERS Safety Report 17407135 (Version 1)
Quarter: 2020Q1

REPORT INFORMATION
  Report Type: Spontaneous
  Country: US (occurrence: US)
  Receive Date: 20200211
  Receipt Date: 20200211
  Transmission Date: 20200409
  Serious: Yes (Other)
  Sender: FDA-Public Use
  Company Number: None

PATIENT
  Age: 61 Year
  Sex: Male
  Weight: 162 kg

DRUGS (1)
  1. CLOTRIMAZOLE AND BETAMETHASONE DIPROPIONATE CREAM USP, 1%/0.05% (BASE) [Suspect]
     Active Substance: BETAMETHASONE DIPROPIONATE\CLOTRIMAZOLE
     Indication: FUNGAL INFECTION
     Route: 061
     Dates: start: 20191224, end: 20200103

REACTIONS (7)
  - Urinary incontinence [None]
  - Palpitations [None]
  - Fatigue [None]
  - Decreased appetite [None]
  - Chills [None]
  - Chromaturia [None]
  - Chest pain [None]

NARRATIVE: CASE EVENT DATE: 20191224
